FAERS Safety Report 12059779 (Version 1)
Quarter: 2016Q1

REPORT INFORMATION
  Report Type: Spontaneous
  Country: IT (occurrence: IT)
  Receive Date: 20160210
  Receipt Date: 20160210
  Transmission Date: 20160526
  Serious: Yes (Other)
  Sender: FDA-Public Use
  Company Number: IT-PURDUE PHARMA-GBR-2016-0033806

PATIENT

DRUGS (1)
  1. OXYCONTIN [Suspect]
     Active Substance: OXYCODONE HYDROCHLORIDE
     Indication: PRODUCT USED FOR UNKNOWN INDICATION
     Route: 065

REACTIONS (5)
  - Drug diversion [Unknown]
  - Drug abuse [Unknown]
  - Overdose [Unknown]
  - Drug withdrawal syndrome [Unknown]
  - Drug dependence [Unknown]
